FAERS Safety Report 8447141-X (Version None)
Quarter: 2012Q2

REPORT INFORMATION
  Report Type: 
  Country: None (occurrence: None)
  Receive Date: 20120619
  Receipt Date: 20110627
  Transmission Date: 20120825
  Serious: No
  Sender: FDA-Public Use
  Company Number: US-PFIZER INC-K201100766

PATIENT
  Age: 43 Year
  Sex: Female
  Weight: 99.773 kg

DRUGS (12)
  1. SINGULAIR [Concomitant]
     Indication: SEASONAL ALLERGY
     Dosage: UNK
  2. LEVOXYL [Suspect]
     Indication: THYROIDECTOMY
     Dosage: 100 UG, 1X/DAY
     Route: 048
     Dates: start: 20100201, end: 20100901
  3. LEVOXYL [Suspect]
     Dosage: 250 UG, 1X/DAY
     Route: 048
     Dates: start: 20110610
  4. NEXIUM [Concomitant]
     Indication: GASTROOESOPHAGEAL REFLUX DISEASE
     Dosage: UNK
  5. AZELASTINE HYDROCHLORIDE [Concomitant]
     Indication: SEASONAL ALLERGY
     Dosage: UNK
  6. IRON [Concomitant]
     Indication: ANAEMIA
     Dosage: UNK
  7. M.V.I. [Concomitant]
     Dosage: UNK
  8. LEVOXYL [Suspect]
     Dosage: 200 MCG (TITRATED TO 150 MCG, 175 MCG THEN 200
     Route: 048
     Dates: start: 20100901, end: 20110603
  9. ZYRTEC [Concomitant]
     Indication: SEASONAL ALLERGY
     Dosage: UNK
  10. CALCIUM [Concomitant]
     Dosage: UNK
  11. POTASSIUM [Concomitant]
     Indication: MUSCLE SPASMS
     Dosage: UNK
  12. NASONEX [Concomitant]
     Indication: SEASONAL ALLERGY
     Dosage: UNK

REACTIONS (5)
  - WEIGHT INCREASED [None]
  - BLOOD THYROID STIMULATING HORMONE INCREASED [None]
  - FEELING ABNORMAL [None]
  - SLEEP DISORDER [None]
  - INSOMNIA [None]
